FAERS Safety Report 22365826 (Version 1)
Quarter: 2023Q2

REPORT INFORMATION
  Report Type: Report from Study
  Country: US (occurrence: US)
  Receive Date: 20230525
  Receipt Date: 20230525
  Transmission Date: 20230721
  Serious: Yes (Other)
  Sender: FDA-Public Use
  Company Number: US-002147023-NVSC2023US115476

PATIENT
  Sex: Female

DRUGS (6)
  1. CLOBETASOL [Suspect]
     Active Substance: CLOBETASOL
     Indication: Psoriasis
     Dosage: UNK
     Route: 065
  2. TRIAMCINOLONE [Suspect]
     Active Substance: TRIAMCINOLONE
     Indication: Psoriasis
     Dosage: UNK
     Route: 065
  3. METRONIDAZOLE [Suspect]
     Active Substance: METRONIDAZOLE
     Indication: Psoriasis
     Dosage: 0.75 %
     Route: 065
  4. AZELAIC ACID [Suspect]
     Active Substance: AZELAIC ACID
     Indication: Psoriasis
     Dosage: 15 %
     Route: 065
  5. CALCIPOTRIENE [Suspect]
     Active Substance: CALCIPOTRIENE
     Indication: Psoriasis
     Dosage: UNK (SCALP SOLUTION)
     Route: 065
  6. PROPRANOLOL [Suspect]
     Active Substance: PROPRANOLOL HYDROCHLORIDE
     Indication: Psoriasis
     Dosage: 80 MG EXTENDED RELEASE CAPSULES
     Route: 065

REACTIONS (9)
  - Psoriasis [Unknown]
  - Drug ineffective [Unknown]
  - Rosacea [Unknown]
  - Erythema [Unknown]
  - Telangiectasia [Unknown]
  - Skin plaque [Unknown]
  - Rash [Unknown]
  - Rash erythematous [Unknown]
  - Product use in unapproved indication [Unknown]
